FAERS Safety Report 4888422-6 (Version None)
Quarter: 2005Q4

REPORT INFORMATION
  Report Type: 
  Country: None (occurrence: None)
  Receive Date: 20051221
  Receipt Date: 20051116
  Transmission Date: 20060501
  Serious: No
  Sender: FDA-Public Use
  Company Number: US-YAMANOUCHI-YPA20050598

PATIENT
  Age: 83 Year
  Sex: Female
  Weight: 90.7194 kg

DRUGS (3)
  1. VESICARE [Suspect]
     Indication: MICTURITION URGENCY
     Dosage: 5 MG QD PO
     Route: 048
     Dates: start: 20051017, end: 20051029
  2. MACROBID [Concomitant]
  3. PYRIDIUM [Concomitant]

REACTIONS (7)
  - ANAEMIA [None]
  - ANOREXIA [None]
  - ASTHMA [None]
  - FLUID RETENTION [None]
  - HALO VISION [None]
  - VISION BLURRED [None]
  - WEIGHT INCREASED [None]
